FAERS Safety Report 4943112-6 (Version None)
Quarter: 2006Q1

REPORT INFORMATION
  Report Type: 
  Country: None (occurrence: None)
  Receive Date: 20060314
  Receipt Date: 20051013
  Transmission Date: 20060701
  Serious: Yes (Hospitalization, Other)
  Sender: FDA-Public Use
  Company Number: US-MERCK-0510USA07427

PATIENT
  Age: 62 Year
  Sex: Female
  Weight: 76 kg

DRUGS (2)
  1. VIOXX [Suspect]
     Indication: MUSCLE SPASMS
     Route: 048
     Dates: start: 20030101, end: 20040101
  2. ZANTAC [Concomitant]
     Route: 065

REACTIONS (8)
  - BLOOD CHOLESTEROL INCREASED [None]
  - CATHETERISATION CARDIAC [None]
  - CEREBROVASCULAR ACCIDENT [None]
  - CORONARY ARTERY DISEASE [None]
  - GALLBLADDER DISORDER [None]
  - HYPERTENSION [None]
  - ISCHAEMIA [None]
  - MYOCARDIAL INFARCTION [None]
